FAERS Safety Report 7811490-6 (Version None)
Quarter: 2011Q4

REPORT INFORMATION
  Report Type: 
  Country: None (occurrence: None)
  Receive Date: 20111013
  Receipt Date: 20111013
  Transmission Date: 20120403
  Serious: Yes (Other)
  Sender: FDA-Public Use
  Company Number: None

PATIENT
  Age: 69 Year
  Sex: Male
  Weight: 99.336 kg

DRUGS (8)
  1. ZETIA [Concomitant]
  2. CHERATUSSIN AC SYRUP [Suspect]
     Indication: COUGH
     Dosage: 5 CC
     Route: 048
     Dates: start: 20111009, end: 20111010
  3. LISINOPRIL [Concomitant]
  4. NIASPAN [Concomitant]
  5. LIPITOR [Concomitant]
  6. TEKTURNA [Concomitant]
  7. PANTOPRAZOLE SODIUM [Concomitant]
  8. AMLODIPINE BESYLATE [Concomitant]

REACTIONS (1)
  - NIGHT SWEATS [None]
